FAERS Safety Report 6694689-4 (Version None)
Quarter: 2010Q2

REPORT INFORMATION
  Report Type: 
  Country: None (occurrence: None)
  Receive Date: 20100420
  Receipt Date: 20100405
  Transmission Date: 20101027
  Serious: Yes (Hospitalization)
  Sender: FDA-Public Use
  Company Number: AUR-APL-2010-00991

PATIENT
  Age: 67 Year
  Sex: Female

DRUGS (2)
  1. FLUOXETINE [Suspect]
     Indication: DEPRESSION
     Dosage: 60MG, DAILY
  2. ONDANSETRON [Suspect]
     Indication: NAUSEA
     Dosage: 4MG, B.D.

REACTIONS (10)
  - BLOOD MAGNESIUM DECREASED [None]
  - BRAIN NATRIURETIC PEPTIDE INCREASED [None]
  - ELECTROCARDIOGRAM QT PROLONGED [None]
  - EMOTIONAL DISORDER [None]
  - LEFT VENTRICULAR DYSFUNCTION [None]
  - MYOCARDIAL INFARCTION [None]
  - STRESS CARDIOMYOPATHY [None]
  - SYNCOPE [None]
  - TORSADE DE POINTES [None]
  - TROPONIN I INCREASED [None]
